FAERS Safety Report 18921406 (Version 1)
Quarter: 2021Q1

REPORT INFORMATION
  Report Type: Spontaneous
  Country: US (occurrence: US)
  Receive Date: 20210222
  Receipt Date: 20210222
  Transmission Date: 20210420
  Serious: No
  Sender: FDA-Public Use
  Company Number: US-BAYER-2021-072730

PATIENT
  Sex: Female

DRUGS (2)
  1. C?LIUM FIBRE [Concomitant]
  2. MIRALAX [Suspect]
     Active Substance: POLYETHYLENE GLYCOL 3350
     Indication: GASTROINTESTINAL DISORDER
     Dosage: UNK UNK, QD FOR ABOUT 2 TO 3 WEEKS
     Dates: start: 2021, end: 2021

REACTIONS (1)
  - Incorrect product administration duration [None]

NARRATIVE: CASE EVENT DATE: 2021
